FAERS Safety Report 20536653 (Version 1)
Quarter: 2022Q1

REPORT INFORMATION
  Report Type: Report from Study
  Country: CA (occurrence: CA)
  Receive Date: 20220302
  Receipt Date: 20220302
  Transmission Date: 20220424
  Serious: Yes (Other)
  Sender: FDA-Public Use
  Company Number: CA-BAYER-2021-194441

PATIENT
  Age: 81 Year
  Sex: Male

DRUGS (2)
  1. RIVAROXABAN [Suspect]
     Active Substance: RIVAROXABAN
     Indication: Product used for unknown indication
     Dosage: UNK
     Route: 048
  2. APALUTAMIDE [Interacting]
     Active Substance: APALUTAMIDE
     Indication: Hormone-dependent prostate cancer
     Dosage: 240 MG 4 EVERY 1 DAY
     Route: 048

REACTIONS (1)
  - Drug interaction [Not Recovered/Not Resolved]
